FAERS Safety Report 8421806-8 (Version None)
Quarter: 2012Q2

REPORT INFORMATION
  Report Type: 
  Country: None (occurrence: None)
  Receive Date: 20120608
  Receipt Date: 20120530
  Transmission Date: 20120825
  Serious: Yes (Other)
  Sender: FDA-Public Use
  Company Number: JP-SANOFI-AVENTIS-2012SA039199

PATIENT
  Age: 40 Year
  Sex: Female

DRUGS (6)
  1. AZATHIOPRINE [Concomitant]
     Indication: SYSTEMIC LUPUS ERYTHEMATOSUS
  2. MELOXICAM [Concomitant]
     Indication: ARTHRALGIA
  3. HYDROXYCHLOROQUINE SULFATE [Suspect]
     Indication: SYSTEMIC LUPUS ERYTHEMATOSUS
     Route: 065
  4. DICLOFENAC SODIUM [Concomitant]
     Indication: ARTHRALGIA
  5. HYDROXYCHLOROQUINE SULFATE [Suspect]
     Dosage: RESUMED
     Route: 065
  6. PREDNISOLONE [Concomitant]
     Indication: SYSTEMIC LUPUS ERYTHEMATOSUS

REACTIONS (4)
  - SYSTEMIC LUPUS ERYTHEMATOSUS [None]
  - SKIN LESION [None]
  - REBOUND EFFECT [None]
  - MALAISE [None]
